FAERS Safety Report 13875813 (Version 1)
Quarter: 2017Q3

REPORT INFORMATION
  Report Type: Spontaneous
  Country: US (occurrence: US)
  Receive Date: 20170817
  Receipt Date: 20170817
  Transmission Date: 20171127
  Serious: No
  Sender: FDA-Public Use
  Company Number: US-009507513-1708USA005569

PATIENT
  Age: 59 Year
  Sex: Male

DRUGS (5)
  1. GLIPIZIDE. [Concomitant]
     Active Substance: GLIPIZIDE
  2. JARDIANCE [Concomitant]
     Active Substance: EMPAGLIFLOZIN
  3. ATORVASTATIN [Concomitant]
     Active Substance: ATORVASTATIN
  4. METFORMIN HYDROCHLORIDE. [Concomitant]
     Active Substance: METFORMIN HYDROCHLORIDE
  5. JANUMET [Suspect]
     Active Substance: METFORMIN HYDROCHLORIDE\SITAGLIPTIN PHOSPHATE
     Indication: TYPE 2 DIABETES MELLITUS
     Dosage: 50/1000 MG TABLET, ONE TABLET IN THE MORNING AND ONE AT NIGHT
     Route: 048
     Dates: start: 2006

REACTIONS (6)
  - Drug dose omission [Unknown]
  - Headache [Unknown]
  - Product availability issue [Unknown]
  - Dry mouth [Unknown]
  - Thirst [Unknown]
  - Polydipsia [Unknown]

NARRATIVE: CASE EVENT DATE: 20170802
